FAERS Safety Report 18261575 (Version 2)
Quarter: 2020Q4

REPORT INFORMATION
  Report Type: Spontaneous
  Country: CR (occurrence: CR)
  Receive Date: 20200914
  Receipt Date: 20201006
  Transmission Date: 20210113
  Serious: Yes (Other)
  Sender: FDA-Public Use
  Company Number: NVSC2020CR244929

PATIENT
  Age: 26 Year
  Sex: Male

DRUGS (2)
  1. DIOVAN [Suspect]
     Active Substance: VALSARTAN
     Indication: ARRHYTHMIA
     Dosage: 80 MG, QD
     Route: 065
  2. ATENOLOL. [Suspect]
     Active Substance: ATENOLOL
     Indication: ARRHYTHMIA
     Dosage: 25 MG, QD
     Route: 065

REACTIONS (12)
  - Electrocardiogram QRS complex prolonged [Unknown]
  - Electrocardiogram abnormal [Unknown]
  - Atrioventricular block complete [Unknown]
  - Electrocardiogram QRS complex shortened [Unknown]
  - Arrhythmia [Unknown]
  - Extrasystoles [Unknown]
  - Atrioventricular block [Unknown]
  - Electrocardiogram P wave [Unknown]
  - Supraventricular extrasystoles [Unknown]
  - Sinus arrhythmia [Unknown]
  - Product use in unapproved indication [Unknown]
  - Defect conduction intraventricular [Unknown]
